FAERS Safety Report 4894635-X (Version None)
Quarter: 2006Q1

REPORT INFORMATION
  Report Type: 
  Country: None (occurrence: None)
  Receive Date: 20060127
  Receipt Date: 20060118
  Transmission Date: 20060701
  Serious: Yes (Hospitalization)
  Sender: FDA-Public Use
  Company Number: US-MERCK-0601USA02064

PATIENT
  Age: 51 Year
  Sex: Female

DRUGS (3)
  1. VIOXX [Suspect]
     Indication: ARTHRITIS
     Route: 048
     Dates: start: 20030301, end: 20030601
  2. LASIX [Concomitant]
     Route: 065
  3. OXYCONTIN [Concomitant]
     Route: 065

REACTIONS (2)
  - CARDIAC FAILURE [None]
  - CEREBROVASCULAR ACCIDENT [None]
